FAERS Safety Report 19297499 (Version 1)
Quarter: 2021Q2

REPORT INFORMATION
  Report Type: Spontaneous
  Country: JP (occurrence: JP)
  Receive Date: 20210524
  Receipt Date: 20210524
  Transmission Date: 20210717
  Serious: No
  Sender: FDA-Public Use
  Company Number: JP-LUPIN PHARMACEUTICALS INC.-2021-07701

PATIENT
  Age: 30 Year
  Sex: Male

DRUGS (3)
  1. VORICONAZOLE. [Suspect]
     Active Substance: VORICONAZOLE
     Indication: ASPERGILLUS INFECTION
     Dosage: UNK, INITIATED ON DAY 17 POST ADMISSION AND DISCONTINUED 8 DAYS LATER
     Route: 042
  2. VORICONAZOLE. [Suspect]
     Active Substance: VORICONAZOLE
     Dosage: UNK
     Route: 048
  3. VORICONAZOLE. [Suspect]
     Active Substance: VORICONAZOLE
     Dosage: UNK, RE?INITIATED ON DAY 9 AFTER TRANSFER TO ANOTHER HOSPITAL
     Route: 042

REACTIONS (2)
  - Alopecia [Unknown]
  - Treatment noncompliance [Unknown]
